FAERS Safety Report 21552190 (Version 1)
Quarter: 2022Q4

REPORT INFORMATION
  Report Type: Spontaneous
  Country: US (occurrence: US)
  Receive Date: 20221104
  Receipt Date: 20221104
  Transmission Date: 20230112
  Serious: No
  Sender: FDA-Public Use
  Company Number: US-BoehringerIngelheim-2022-BI-199821

PATIENT

DRUGS (3)
  1. MELOXICAM [Suspect]
     Active Substance: MELOXICAM
     Indication: Pain
  2. GABAPENTIN [Suspect]
     Active Substance: GABAPENTIN
     Indication: Pain
  3. TOPAMAX [Suspect]
     Active Substance: TOPIRAMATE
     Indication: Pain

REACTIONS (1)
  - Poor quality sleep [Unknown]

NARRATIVE: CASE EVENT DATE: 20221027
